FAERS Safety Report 5483064-6 (Version None)
Quarter: 2007Q4

REPORT INFORMATION
  Report Type: 
  Country: None (occurrence: None)
  Receive Date: 20071005
  Receipt Date: 20061227
  Transmission Date: 20080405
  Serious: Yes (Other)
  Sender: FDA-Public Use
  Company Number: 6028555

PATIENT
  Age: 45 Year
  Sex: Female

DRUGS (2)
  1. CIPROFLOXACIN [Suspect]
     Indication: PYURIA
     Dosage: 400 MG (400 MG, 1 IN 1 D)
  2. TIZANIDINE HCL [Suspect]
     Indication: DRUG USE FOR UNKNOWN INDICATION
     Dosage: 3 MG (3 MG, 1 IN 1 D)

REACTIONS (2)
  - BODY TEMPERATURE DECREASED [None]
  - DRUG INTERACTION [None]
